FAERS Safety Report 13729996 (Version 2)
Quarter: 2017Q3

REPORT INFORMATION
  Report Type: Spontaneous
  Country: US (occurrence: US)
  Receive Date: 20170707
  Receipt Date: 20170816
  Transmission Date: 20171127
  Serious: Yes (Hospitalization)
  Sender: FDA-Public Use
  Company Number: US-JNJFOC-20170515499

PATIENT
  Age: 72 Year
  Sex: Female

DRUGS (1)
  1. XARELTO [Suspect]
     Active Substance: RIVAROXABAN
     Indication: THROMBOSIS PROPHYLAXIS
     Dosage: 15 MG AND 20 MG
     Route: 048
     Dates: start: 20150225, end: 20150323

REACTIONS (2)
  - Anaemia [Recovering/Resolving]
  - Internal haemorrhage [Unknown]

NARRATIVE: CASE EVENT DATE: 20150323
